FAERS Safety Report 25646662 (Version 1)
Quarter: 2025Q3

REPORT INFORMATION
  Report Type: Spontaneous
  Country: EU (occurrence: EU)
  Receive Date: 20250805
  Receipt Date: 20250805
  Transmission Date: 20251020
  Serious: Yes (Life-Threatening, Hospitalization, Disabling)
  Sender: TEVA
  Company Number: None

PATIENT
  Age: 68 Year
  Sex: Male
  Weight: 81 kg

DRUGS (13)
  1. METHOTREXATE [Suspect]
     Active Substance: METHOTREXATE
     Indication: Rheumatic disorder
     Dosage: 10 TABLETS ONCE A DAY, BRAND NAME NOT SPECIFIED
     Route: 048
     Dates: start: 20250205, end: 20250512
  2. CLOPIDOGREL [Concomitant]
     Active Substance: CLOPIDOGREL BISULFATE
     Indication: Product used for unknown indication
     Route: 048
  3. CHOLECALCIFEROL [Concomitant]
     Active Substance: CHOLECALCIFEROL
     Indication: Product used for unknown indication
     Route: 048
  4. BUDESONIDE [Concomitant]
     Active Substance: BUDESONIDE
     Indication: Product used for unknown indication
     Route: 065
  5. INSULIN LISPRO [Concomitant]
     Active Substance: INSULIN LISPRO
     Indication: Product used for unknown indication
     Route: 065
  6. DUTASTERIDE TAMSULOSINE [Concomitant]
     Indication: Product used for unknown indication
     Route: 048
  7. GLUCAGON BAQSIMI [Concomitant]
     Indication: Product used for unknown indication
     Route: 045
  8. CARBASALATE ASCAL [Concomitant]
     Indication: Product used for unknown indication
     Route: 048
  9. PANTOPRAZOLE SODIUM [Concomitant]
     Active Substance: PANTOPRAZOLE SODIUM
     Indication: Product used for unknown indication
     Route: 048
  10. RISEDRONIC ACID [Concomitant]
     Active Substance: RISEDRONIC ACID
     Indication: Product used for unknown indication
     Route: 048
  11. EZETIMIBE [Concomitant]
     Active Substance: EZETIMIBE
     Indication: Product used for unknown indication
     Route: 048
  12. EVOLOCUMAB REPATHA [Concomitant]
     Indication: Product used for unknown indication
  13. SALMETEROL SERVEVENT [Concomitant]
     Indication: Product used for unknown indication

REACTIONS (3)
  - Balance disorder [Recovering/Resolving]
  - Deafness [Recovering/Resolving]
  - Confusional state [Recovering/Resolving]
